FAERS Safety Report 22027139 (Version 1)
Quarter: 2023Q1

REPORT INFORMATION
  Report Type: Spontaneous
  Country: US (occurrence: None)
  Receive Date: 20230223
  Receipt Date: 20230223
  Transmission Date: 20230418
  Serious: Yes (Hospitalization, Other)
  Sender: FDA-Public Use
  Company Number: US-MLMSERVICE-20230201-4066524-1

PATIENT
  Age: 22 Year
  Sex: Male

DRUGS (1)
  1. AMPICILLIN [Suspect]
     Active Substance: AMPICILLIN
     Dosage: ACCIDENTAL AMPICILLIN EXPOSURE ()

REACTIONS (5)
  - Rash [Recovering/Resolving]
  - Angioedema [Recovering/Resolving]
  - Accidental exposure to product [Recovered/Resolved]
  - Arthralgia [Recovering/Resolving]
  - Urticaria [Recovering/Resolving]
